FAERS Safety Report 8500527-7 (Version None)
Quarter: 2012Q3

REPORT INFORMATION
  Report Type: 
  Country: None (occurrence: None)
  Receive Date: 20120710
  Receipt Date: 20120626
  Transmission Date: 20120928
  Serious: Yes (Hospitalization)
  Sender: FDA-Public Use
  Company Number: JP-ROCHE-1065888

PATIENT
  Age: 54 Year
  Sex: Female

DRUGS (3)
  1. NEORAL [Concomitant]
     Route: 048
     Dates: start: 20090501
  2. ACTEMRA [Suspect]
     Indication: STILL'S DISEASE ADULT ONSET
     Route: 041
     Dates: start: 20110901, end: 20120401
  3. PREDNISOLONE [Concomitant]
     Route: 048
     Dates: start: 20090501

REACTIONS (2)
  - DOUBLE STRANDED DNA ANTIBODY [None]
  - ANTINUCLEAR ANTIBODY POSITIVE [None]
